FAERS Safety Report 4534399-2 (Version None)
Quarter: 2004Q4

REPORT INFORMATION
  Report Type: 
  Country: None (occurrence: None)
  Receive Date: 20041214
  Receipt Date: 20040916
  Transmission Date: 20050328
  Serious: Yes (Hospitalization)
  Sender: FDA-Public Use
  Company Number: 2004234357US

PATIENT
  Age: 91 Year

DRUGS (1)
  1. BEXTRA [Suspect]
     Dosage: 10 MG, QD

REACTIONS (1)
  - CARDIAC FAILURE CONGESTIVE [None]
